FAERS Safety Report 5563553-6 (Version None)
Quarter: 2007Q4

REPORT INFORMATION
  Report Type: 
  Country: None (occurrence: None)
  Receive Date: 20071217
  Receipt Date: 20070711
  Transmission Date: 20080405
  Serious: No
  Sender: FDA-Public Use
  Company Number: US-ASTRAZENECA-2007UW16304

PATIENT
  Age: 65 Year
  Sex: Male
  Weight: 88.5 kg

DRUGS (2)
  1. CRESTOR [Suspect]
     Route: 048
     Dates: start: 20030101
  2. ASPIRIN [Concomitant]

REACTIONS (2)
  - ARTHRALGIA [None]
  - BLOOD HOMOCYSTEINE INCREASED [None]
